FAERS Safety Report 16310993 (Version 1)
Quarter: 2019Q2

REPORT INFORMATION
  Report Type: Spontaneous
  Country: US (occurrence: US)
  Receive Date: 20190514
  Receipt Date: 20190514
  Transmission Date: 20190711
  Serious: Yes (Hospitalization)
  Sender: FDA-Public Use
  Company Number: US-CONTRACT PHARMACAL CORP-2019CPC00008

PATIENT
  Age: 91 Year
  Sex: Female
  Weight: 37.19 kg

DRUGS (14)
  1. PROLIA [Concomitant]
     Active Substance: DENOSUMAB
     Dosage: EVERY 6 MONTHS
  2. WARFARIN [Concomitant]
     Active Substance: WARFARIN
     Dosage: 1.25 MG, 1X/WEEK
  3. MIRALAX [Concomitant]
     Active Substance: POLYETHYLENE GLYCOL 3350
  4. VITAMIN B12 [Concomitant]
     Active Substance: CYANOCOBALAMIN
     Dosage: 500 ?G, 1X/WEEK
  5. CALCIUM [Concomitant]
     Active Substance: CALCIUM
     Dosage: 500 MG, 1X/DAY
  6. STOOL SOFTENER (DOCUSATE SODIUM\SENNOSIDES) [Suspect]
     Active Substance: DOCUSATE SODIUM\SENNOSIDES
     Indication: CONSTIPATION
     Dosage: 2 TABLETS (100/17.2 MG), OFF AND ON (ON AVERAGE ONCE A MONTH)
     Route: 048
     Dates: start: 2018, end: 20190501
  7. METOPROLOL. [Concomitant]
     Active Substance: METOPROLOL
     Dosage: 100 MG, 3X/DAY
  8. SIMVASTATIN. [Concomitant]
     Active Substance: SIMVASTATIN
     Dosage: 10 MG, 1X/DAY
  9. FIBER CAPSULE [Concomitant]
     Dosage: 1 CAPSULES, 1X/DAY
  10. WARFARIN [Concomitant]
     Active Substance: WARFARIN
     Dosage: 2.5 MG, 6X/WEEK
  11. LISINOPRIL. [Concomitant]
     Active Substance: LISINOPRIL
     Dosage: 10 MG, 1X/DAY
  12. VITAMIN D3 [Concomitant]
     Active Substance: CHOLECALCIFEROL
     Dosage: 1000 IU, 1X/DAY
  13. MULTIVITAMIN [Concomitant]
     Active Substance: VITAMINS
  14. ASPIRIN. [Concomitant]
     Active Substance: ASPIRIN
     Dosage: UNK, 1X/DAY

REACTIONS (8)
  - Faeces hard [Recovered/Resolved]
  - Dizziness [Recovered/Resolved]
  - Haemorrhoidal haemorrhage [Recovered/Resolved]
  - Faecal volume increased [Recovered/Resolved]
  - Rectal haemorrhage [Recovered/Resolved]
  - Dysstasia [Recovered/Resolved]
  - Diarrhoea [Not Recovered/Not Resolved]
  - Haematochezia [Recovered/Resolved]

NARRATIVE: CASE EVENT DATE: 201905
